FAERS Safety Report 9799460 (Version 4)
Quarter: 2014Q4

REPORT INFORMATION
  Report Type: Spontaneous
  Country: US (occurrence: US)
  Receive Date: 20140106
  Receipt Date: 20141211
  Transmission Date: 20150529
  Serious: Yes (Death, Hospitalization, Other)
  Sender: FDA-Public Use
  Company Number: US-MERCK-1401USA000730

PATIENT
  Sex: Male
  Weight: 73.47 kg

DRUGS (1)
  1. JANUVIA [Suspect]
     Active Substance: SITAGLIPTIN PHOSPHATE
     Indication: TYPE 2 DIABETES MELLITUS
     Dosage: 100 MG, QD
     Route: 048
     Dates: start: 20081213, end: 201007

REACTIONS (10)
  - Pancreatic carcinoma metastatic [Fatal]
  - Metastases to liver [Unknown]
  - Pulmonary embolism [Unknown]
  - Hypertension [Unknown]
  - Ascites [Unknown]
  - Deep vein thrombosis [Unknown]
  - Stent placement [Unknown]
  - Atrial fibrillation [Unknown]
  - Myocardial ischaemia [Unknown]
  - Mental status changes [Unknown]

NARRATIVE: CASE EVENT DATE: 201106
